FAERS Safety Report 10812012 (Version 1)
Quarter: 2015Q1

REPORT INFORMATION
  Report Type: Spontaneous
  Country: US (occurrence: None)
  Receive Date: 20150213
  Receipt Date: 20150213
  Transmission Date: 20150721
  Serious: Yes (Hospitalization)
  Sender: FDA-Public Use
  Company Number: None

PATIENT
  Age: 51 Year
  Sex: Male
  Weight: 106 kg

DRUGS (4)
  1. TRAMADOL (ULTRAM) [Concomitant]
  2. IBUPROFEN 600MG [Suspect]
     Active Substance: IBUPROFEN
     Indication: PAIN
     Dosage: 1 TID ORAL
     Route: 048
  3. HYDROCODONE-ACETAMINOPHEN (NORCO) [Concomitant]
  4. OXYCODONE/APAP (PERCOCET) [Concomitant]

REACTIONS (9)
  - Gastric mucosa erythema [None]
  - Asthenia [None]
  - Hyperhidrosis [None]
  - Syncope [None]
  - Haemoglobin decreased [None]
  - Gastrointestinal haemorrhage [None]
  - Dyspnoea [None]
  - Erosive oesophagitis [None]
  - Duodenal ulcer [None]

NARRATIVE: CASE EVENT DATE: 20140330
